FAERS Safety Report 12922704 (Version 1)
Quarter: 2016Q4

REPORT INFORMATION
  Report Type: Spontaneous
  Country: US (occurrence: US)
  Receive Date: 20161108
  Receipt Date: 20161108
  Transmission Date: 20170207
  Serious: Yes (Other)
  Sender: FDA-Public Use
  Company Number: None

PATIENT
  Age: 8 Month
  Sex: Male
  Weight: 3.6 kg

DRUGS (2)
  1. CEFTRIAXONE SAGENT [Suspect]
     Active Substance: CEFTRIAXONE
     Indication: OTITIS MEDIA
     Route: 030
     Dates: start: 20161106
  2. XYLOCAINE [Suspect]
     Active Substance: LIDOCAINE HYDROCHLORIDE
     Indication: OTITIS MEDIA
     Route: 030
     Dates: start: 20161106

REACTIONS (1)
  - Injection site rash [None]

NARRATIVE: CASE EVENT DATE: 20161106
